FAERS Safety Report 19239524 (Version 1)
Quarter: 2021Q2

REPORT INFORMATION
  Report Type: Spontaneous
  Country: US (occurrence: US)
  Receive Date: 20210511
  Receipt Date: 20210511
  Transmission Date: 20210717
  Serious: No
  Sender: FDA-Public Use
  Company Number: US-SA-2021SA149925

PATIENT
  Age: 71 Year
  Sex: Male

DRUGS (17)
  1. CRANBERRY [ASCORBIC ACID;VACCINIUM SPP.] [Concomitant]
     Active Substance: ASCORBIC ACID\CRANBERRY
  2. CABOMETYX [Concomitant]
     Active Substance: CABOZANTINIB S-MALATE
  3. IRON [Concomitant]
     Active Substance: IRON
  4. AMLODIPINE BESYLATE. [Concomitant]
     Active Substance: AMLODIPINE BESYLATE
  5. SYNTHROID [Concomitant]
     Active Substance: LEVOTHYROXINE SODIUM
  6. RELIFEX [Concomitant]
     Active Substance: NABUMETONE
  7. ASPIRINE [Concomitant]
     Active Substance: ASPIRIN
  8. VITAMIN D3 [Concomitant]
     Active Substance: CHOLECALCIFEROL
  9. FISH OIL [Concomitant]
     Active Substance: FISH OIL
  10. DUPIXENT [Suspect]
     Active Substance: DUPILUMAB
     Indication: RASH
  11. XOLAIR [Concomitant]
     Active Substance: OMALIZUMAB
  12. FOLIC ACID. [Concomitant]
     Active Substance: FOLIC ACID
  13. GLUCOSAMINE CHONDROINATO [Concomitant]
  14. VALSARTAN. [Concomitant]
     Active Substance: VALSARTAN
  15. VITAMIN B12 [VITAMIN B12 NOS] [Concomitant]
     Active Substance: CYANOCOBALAMIN
  16. DUPIXENT [Suspect]
     Active Substance: DUPILUMAB
     Indication: DERMATITIS ATOPIC
     Dosage: 300 MG, QOW
     Route: 058
     Dates: start: 20210304
  17. DUPIXENT [Suspect]
     Active Substance: DUPILUMAB
     Indication: DERMATITIS

REACTIONS (9)
  - Oral pain [Unknown]
  - Taste disorder [Unknown]
  - Dysphagia [Unknown]
  - Skin exfoliation [Unknown]
  - Decreased appetite [Unknown]
  - Palmar-plantar erythrodysaesthesia syndrome [Unknown]
  - Product use in unapproved indication [Unknown]
  - Hyperaesthesia [Unknown]
  - Gait disturbance [Recovered/Resolved]

NARRATIVE: CASE EVENT DATE: 2021
